FAERS Safety Report 11058932 (Version 1)
Quarter: 2015Q2

REPORT INFORMATION
  Report Type: Spontaneous
  Country: US (occurrence: None)
  Receive Date: 20150416
  Receipt Date: 20150416
  Transmission Date: 20150821
  Serious: Yes (Hospitalization)
  Sender: FDA-Public Use
  Company Number: AUR-APL-2014-11342

PATIENT
  Age: 74 Year
  Sex: Female
  Weight: 92 kg

DRUGS (15)
  1. SERTRALINE [Concomitant]
     Active Substance: SERTRALINE HYDROCHLORIDE
  2. LOVASTATIN. [Concomitant]
     Active Substance: LOVASTATIN
  3. GABAPENTIN. [Concomitant]
     Active Substance: GABAPENTIN
  4. METOPROLOL [Concomitant]
     Active Substance: METOPROLOL
  5. NEXIUM/01479302/ (ESOMEPRAZOLE MAGNESIUM) [Concomitant]
  6. METHOTREXATE [Concomitant]
     Active Substance: METHOTREXATE
  7. VITAMIN B6 [Concomitant]
     Active Substance: PYRIDOXINE HYDROCHLORIDE
  8. LISINOPRIL TABLET (LISNOPRIL) TABLET, UNKNOWN [Suspect]
     Active Substance: LISINOPRIL
     Indication: PRODUCT USED FOR UNKNOWN INDICATION
     Dosage: 1 DF, UNK, ORAL
     Route: 048
     Dates: start: 20140910
  9. CALCIUM [Concomitant]
     Active Substance: CALCIUM
  10. FOLIC ACID. [Concomitant]
     Active Substance: FOLIC ACID
  11. TIZANIDINE (TIZANIDINE) [Concomitant]
     Active Substance: TIZANIDINE
  12. CHLORTHALIDONE. [Concomitant]
     Active Substance: CHLORTHALIDONE
  13. FIBERCON (POLYCARBOPHIL CALCIUM) [Concomitant]
  14. PREDNISONE. [Concomitant]
     Active Substance: PREDNISONE
  15. DIGOXIN. [Concomitant]
     Active Substance: DIGOXIN

REACTIONS (1)
  - Angioedema [None]

NARRATIVE: CASE EVENT DATE: 20140911
